FAERS Safety Report 8890529 (Version 1)
Quarter: 2012Q4

REPORT INFORMATION
  Report Type: 
  Country: PA (occurrence: PA)
  Receive Date: 20121106
  Receipt Date: 20121106
  Transmission Date: 20130627
  Serious: Yes (Death, Other)
  Sender: FDA-Public Use
  Company Number: PA-WATSON-2012-18566

PATIENT

DRUGS (2)
  1. ALENDRONATE SODIUM [Suspect]
     Indication: OSTEOPOROSIS
     Dosage: 35 mg, 1/week
     Route: 048
     Dates: start: 201205
  2. ALENDRONATE SODIUM [Suspect]
     Dosage: 35 mg, 1/week
     Route: 048
     Dates: start: 2002, end: 201205

REACTIONS (1)
  - Abscess jaw [Not Recovered/Not Resolved]
